FAERS Safety Report 6654675-7 (Version None)
Quarter: 2010Q1

REPORT INFORMATION
  Report Type: 
  Country: None (occurrence: None)
  Receive Date: 20100326
  Receipt Date: 20100323
  Transmission Date: 20100710
  Serious: Yes (Death, Hospitalization)
  Sender: FDA-Public Use
  Company Number: TW-MERCK-1003TWN00014

PATIENT
  Age: 81 Year
  Sex: Female

DRUGS (3)
  1. FOSAMAX PLUS D [Suspect]
     Indication: OSTEOPOROSIS
     Route: 048
     Dates: start: 20090330, end: 20090601
  2. FOSAMAX PLUS D [Suspect]
     Route: 048
     Dates: start: 20090706, end: 20091102
  3. FOSAMAX PLUS D [Suspect]
     Route: 048
     Dates: start: 20090612, end: 20090612

REACTIONS (5)
  - CHEST DISCOMFORT [None]
  - DEPRESSED LEVEL OF CONSCIOUSNESS [None]
  - DYSARTHRIA [None]
  - MULTI-ORGAN FAILURE [None]
  - MUSCULAR WEAKNESS [None]
